FAERS Safety Report 6551413-3 (Version None)
Quarter: 2010Q1

REPORT INFORMATION
  Report Type: 
  Country: None (occurrence: None)
  Receive Date: 20100120
  Receipt Date: 20100105
  Transmission Date: 20100710
  Serious: Yes (Other)
  Sender: FDA-Public Use
  Company Number: A-NJ2009-31415

PATIENT
  Age: 96 Year
  Sex: Male
  Weight: 66.2 kg

DRUGS (7)
  1. TRACLEER [Suspect]
     Indication: PULMONARY ARTERIAL HYPERTENSION
     Dosage: 62.5 MG, BID, ORAL
     Route: 048
     Dates: start: 20090528, end: 20091123
  2. COREG [Concomitant]
  3. RAMIPRIL [Concomitant]
  4. ALDACTONE [Concomitant]
  5. TORSEMIDE [Concomitant]
  6. FINASTERIDE [Concomitant]
  7. PLAVIX [Concomitant]

REACTIONS (4)
  - BURNING SENSATION [None]
  - DYSPNOEA [None]
  - NAUSEA [None]
  - PALPITATIONS [None]
